FAERS Safety Report 18842522 (Version 1)
Quarter: 2021Q1

REPORT INFORMATION
  Report Type: Spontaneous
  Country: US (occurrence: US)
  Receive Date: 20210203
  Receipt Date: 20210203
  Transmission Date: 20210419
  Serious: No
  Sender: FDA-Public Use
  Company Number: US-GALDERMA-US2020047358

PATIENT
  Sex: Female

DRUGS (2)
  1. SOOLANTRA [Suspect]
     Active Substance: IVERMECTIN
     Indication: PRODUCT USED FOR UNKNOWN INDICATION
     Dosage: 1%
     Route: 061
  2. SOOLANTRA [Suspect]
     Active Substance: IVERMECTIN
     Dosage: 1%
     Route: 061

REACTIONS (3)
  - Intentional product misuse [Recovered/Resolved]
  - Acne [Unknown]
  - Intentional overdose [Recovered/Resolved]
